FAERS Safety Report 11228689 (Version 1)
Quarter: 2015Q2

REPORT INFORMATION
  Report Type: Spontaneous
  Country: US (occurrence: US)
  Receive Date: 20150630
  Receipt Date: 20150630
  Transmission Date: 20150821
  Serious: No
  Sender: FDA-Public Use
  Company Number: US-MEDA-2015020066

PATIENT
  Sex: Female

DRUGS (1)
  1. CARISOPRODOL. [Suspect]
     Active Substance: CARISOPRODOL
     Route: 048
     Dates: start: 201502, end: 201502

REACTIONS (2)
  - Palpitations [Unknown]
  - Gastric disorder [Unknown]

NARRATIVE: CASE EVENT DATE: 201502
